FAERS Safety Report 15494443 (Version 1)
Quarter: 2018Q4

REPORT INFORMATION
  Report Type: Spontaneous
  Country: US (occurrence: US)
  Receive Date: 20181012
  Receipt Date: 20181012
  Transmission Date: 20190205
  Serious: Yes (Other)
  Sender: FDA-Public Use
  Company Number: None

PATIENT
  Age: 79 Year
  Sex: Female

DRUGS (3)
  1. SILDENAFIL. [Suspect]
     Active Substance: SILDENAFIL
     Indication: PULMONARY ARTERIAL HYPERTENSION
     Route: 048
     Dates: start: 20180209, end: 20181005
  2. FUROSEMIDE. [Concomitant]
     Active Substance: FUROSEMIDE
  3. ASMANEX HFA INHALER [Concomitant]

REACTIONS (1)
  - Skin cancer [None]
